FAERS Safety Report 18162279 (Version 1)
Quarter: 2020Q3

REPORT INFORMATION
  Report Type: Other
  Country: DE (occurrence: DE)
  Receive Date: 20200818
  Receipt Date: 20200818
  Transmission Date: 20201103
  Serious: Yes (Hospitalization)
  Sender: FDA-Public Use
  Company Number: DE-GLENMARK PHARMACEUTICALS-2020GMK049122

PATIENT

DRUGS (3)
  1. METAMIZOL [Concomitant]
     Active Substance: METAMIZOLE SODIUM
     Indication: MIGRAINE
     Dosage: 20 GTT DROPS ([DRP] (DROP (1/12 MILLILITRE))
     Route: 048
  2. IBUPROFEN. [Concomitant]
     Active Substance: IBUPROFEN
     Indication: MIGRAINE
     Dosage: 600 MILLIGRAM
     Route: 048
  3. TOPIRAMAT [Suspect]
     Active Substance: TOPIRAMATE
     Indication: ELECTROENCEPHALOGRAM ABNORMAL
     Dosage: 50 MILLIGRAM, OD (DAILY DOSE: 50 MG EVERY DAYS 2 SEPARATED DOSES)
     Route: 048
     Dates: end: 201905

REACTIONS (4)
  - Migraine [Unknown]
  - Photophobia [Unknown]
  - Dizziness [Unknown]
  - Nausea [Unknown]

NARRATIVE: CASE EVENT DATE: 20190518
